FAERS Safety Report 9727778 (Version 3)
Quarter: 2014Q2

REPORT INFORMATION
  Report Type: Report from Study
  Country: US (occurrence: US)
  Receive Date: 20131203
  Receipt Date: 20140626
  Transmission Date: 20141212
  Serious: Yes (Hospitalization)
  Sender: FDA-Public Use
  Company Number: US-BRISTOL-MYERS SQUIBB COMPANY-19857341

PATIENT
  Age: 86 Year
  Sex: Male
  Weight: 70.4 kg

DRUGS (18)
  1. IPILIMUMAB [Suspect]
     Indication: MALIGNANT MELANOMA
     Dosage: 1 DF=5MG/ML.40ML VIALS;?L0MG/KG IV Q2LDAYS
     Route: 042
     Dates: start: 20130827, end: 20131030
  2. GM-CSF [Suspect]
     Indication: MALIGNANT MELANOMA
     Dosage: 1 DF= 250 MCG/ML?125MCG/M2 SUBQ Q21D
     Dates: start: 20130827, end: 20131101
  3. VITAMIN D3 [Concomitant]
     Route: 048
  4. XARELTO [Concomitant]
  5. RAPAFLO [Concomitant]
     Route: 048
  6. REQUIP [Concomitant]
     Route: 048
  7. METOPROLOL [Concomitant]
     Route: 048
  8. CHOLESTYRAMINE [Concomitant]
     Route: 048
  9. RESVERATROL [Concomitant]
  10. MELATONIN [Concomitant]
  11. KRILL OIL [Concomitant]
  12. ASPIRINE [Concomitant]
     Route: 048
  13. PREDNISONE [Concomitant]
     Dosage: AND 10MG IN EVENING
  14. HYDRALAZINE [Concomitant]
     Indication: HYPERTENSION
     Route: 042
  15. PROTONIX [Concomitant]
     Indication: RESTLESS LEGS SYNDROME
     Route: 042
  16. METHYLPREDNISOLONE [Concomitant]
     Route: 042
  17. ATIVAN [Concomitant]
     Indication: ANXIETY
     Route: 048
  18. TYLENOL [Concomitant]
     Indication: PAIN
     Route: 048

REACTIONS (10)
  - Colitis [Recovering/Resolving]
  - Atrial fibrillation [Unknown]
  - Hyperthyroidism [Unknown]
  - Diverticular perforation [Recovered/Resolved]
  - Peritonitis [Recovered/Resolved]
  - Sepsis [Recovered/Resolved]
  - Ascites [Recovered/Resolved]
  - Abdominal abscess [Recovered/Resolved]
  - Electrolyte imbalance [Recovered/Resolved]
  - Malnutrition [Recovered/Resolved]
